FAERS Safety Report 26181095 (Version 1)
Quarter: 2025Q4

REPORT INFORMATION
  Report Type: Spontaneous
  Country: PR (occurrence: PR)
  Receive Date: 20251221
  Receipt Date: 20251221
  Transmission Date: 20260117
  Serious: Yes (Other)
  Sender: ANI
  Company Number: PR-ANIPHARMA-2025-PR-000120

PATIENT
  Age: 50 Year
  Sex: Female
  Weight: 68.04 kg

DRUGS (9)
  1. CORTICOTROPIN [Suspect]
     Active Substance: CORTICOTROPIN
     Indication: Multiple sclerosis
     Dosage: 80 UNTIS SUBQ DAILY FOR 15 DAYS, USED FOR 6 DAYS
     Route: 058
     Dates: start: 20251001, end: 20251007
  2. FOLIC ACID [Concomitant]
     Active Substance: FOLIC ACID
  3. Dialy-Vite [Concomitant]
  4. VITAMIN D NOS [Concomitant]
     Active Substance: CHOLECALCIFEROL\ERGOCALCIFEROL
  5. WARFARIN [Concomitant]
     Active Substance: WARFARIN
  6. IRON [Concomitant]
     Active Substance: IRON
  7. UNSPECIFIED INGREDIENT [Concomitant]
     Active Substance: UNSPECIFIED INGREDIENT
  8. NORFLEX [Concomitant]
     Active Substance: ORPHENADRINE CITRATE
  9. DORZOLAMIDE [Concomitant]
     Active Substance: DORZOLAMIDE

REACTIONS (4)
  - Blood pressure increased [Unknown]
  - Abnormal weight gain [Unknown]
  - Face oedema [Unknown]
  - Contraindicated product administered [Recovered/Resolved]

NARRATIVE: CASE EVENT DATE: 20251001
